FAERS Safety Report 8710853 (Version 2)
Quarter: 2012Q4

REPORT INFORMATION
  Report Type: Report from Study
  Country: JP (occurrence: JP)
  Receive Date: 20120807
  Receipt Date: 20120926
  Transmission Date: 20130627
  Serious: Yes (Death)
  Sender: FDA-Public Use
  Company Number: JP-ASTELLAS-2012US006710

PATIENT
  Age: 52 Year
  Sex: Female

DRUGS (7)
  1. ERLOTINIB TABLET [Suspect]
     Indication: PANCREATIC CARCINOMA
     Dosage: 100 mg, UID/QD
     Route: 048
     Dates: start: 20120523, end: 20120622
  2. GEMCITABINE HCL [Concomitant]
     Indication: PANCREATIC CARCINOMA
     Dosage: 1000 mg/m2, Weekly
     Route: 041
     Dates: start: 20120523, end: 20120621
  3. LOXONIN [Concomitant]
     Indication: PRODUCT USED FOR UNKNOWN INDICATION
     Dosage: 180 mg, UID/QD
     Route: 048
     Dates: start: 20120516, end: 20120623
  4. MUCOSTA [Concomitant]
     Indication: PRODUCT USED FOR UNKNOWN INDICATION
     Dosage: 300 mg, UID/QD
     Route: 048
     Dates: start: 20120516, end: 20120623
  5. TAKEPRON [Concomitant]
     Indication: PRODUCT USED FOR UNKNOWN INDICATION
     Dosage: 15 mg, UID/QD
     Route: 048
     Dates: start: 20120518, end: 20120623
  6. MAGLAX [Concomitant]
     Indication: PRODUCT USED FOR UNKNOWN INDICATION
     Dosage: 750 mg, UID/QD
     Route: 048
     Dates: start: 20120528, end: 20120623
  7. TRAMAL [Concomitant]
     Indication: PRODUCT USED FOR UNKNOWN INDICATION
     Dosage: 100 mg, UID/QD
     Route: 048
     Dates: start: 20120531, end: 20120623

REACTIONS (3)
  - Shock [Fatal]
  - Gastrointestinal haemorrhage [Fatal]
  - Rash [Recovering/Resolving]
